FAERS Safety Report 9348328 (Version 1)
Quarter: 2013Q2

REPORT INFORMATION
  Report Type: Spontaneous
  Country: US (occurrence: US)
  Receive Date: 20130614
  Receipt Date: 20130614
  Transmission Date: 20140414
  Serious: Yes (Hospitalization)
  Sender: FDA-Public Use
  Company Number: US-SANOFI-AVENTIS-2013SA059774

PATIENT
  Sex: Female

DRUGS (2)
  1. LANTUS SOLOSTAR [Suspect]
  2. SOLOSTAR [Suspect]

REACTIONS (4)
  - Toe amputation [Unknown]
  - Gingival bleeding [Unknown]
  - Tooth loss [Unknown]
  - Loose tooth [Unknown]
